FAERS Safety Report 7678054-9 (Version None)
Quarter: 2011Q3

REPORT INFORMATION
  Report Type: 
  Country: None (occurrence: None)
  Receive Date: 20110811
  Receipt Date: 20110804
  Transmission Date: 20111222
  Serious: Yes (Hospitalization)
  Sender: FDA-Public Use
  Company Number: US-ACTELION-A-NJ2011-51830

PATIENT

DRUGS (7)
  1. OXYGEN [Concomitant]
  2. TRACLEER [Suspect]
     Indication: PULMONARY ARTERIAL HYPERTENSION
     Dosage: UNK
     Route: 048
     Dates: start: 20100708, end: 20110701
  3. TRACLEER [Suspect]
     Dosage: UNK
     Route: 048
     Dates: start: 20110701
  4. COUMADIN [Concomitant]
  5. VENTAVIS [Suspect]
     Indication: PULMONARY ARTERIAL HYPERTENSION
     Dosage: UNK
     Route: 055
     Dates: start: 20100726, end: 20110701
  6. REVATIO [Concomitant]
  7. CALCIUM CHANNEL BLOCKERS [Concomitant]

REACTIONS (3)
  - BODY TEMPERATURE INCREASED [None]
  - DYSPNOEA [None]
  - OSTEOMYELITIS [None]
